FAERS Safety Report 7838185-7 (Version None)
Quarter: 2011Q4

REPORT INFORMATION
  Report Type: 
  Country: None (occurrence: None)
  Receive Date: 20111024
  Receipt Date: 20111015
  Transmission Date: 20120403
  Serious: Yes (Other)
  Sender: FDA-Public Use
  Company Number: PHHY2011IN91979

PATIENT
  Sex: Male

DRUGS (7)
  1. TOPIRAMATE [Suspect]
     Indication: CONVULSION
     Dosage: UNK UKN, UNK
  2. PHENOBARBITAL TAB [Suspect]
     Indication: CONVULSION
     Dosage: UNK UKN, UNK
  3. CLOBAZAM [Concomitant]
     Indication: CONVULSION
     Dosage: UNK
  4. VALPROATE SODIUM [Suspect]
     Indication: CONVULSION
     Dosage: UNK UKN, UNK
  5. ZONISAMIDE [Concomitant]
     Indication: CONVULSION
  6. CLONAZEPAM [Suspect]
     Indication: CONVULSION
     Dosage: UNK UKN, UNK
  7. LAMOTRIGINE [Suspect]
     Indication: CONVULSION
     Dosage: UNK UKN, UNK

REACTIONS (6)
  - CEREBRAL ATROPHY [None]
  - LENNOX-GASTAUT SYNDROME [None]
  - AGGRESSION [None]
  - ATTENTION DEFICIT/HYPERACTIVITY DISORDER [None]
  - CONVULSION [None]
  - PSYCHOMOTOR RETARDATION [None]
